FAERS Safety Report 24156746 (Version 1)
Quarter: 2024Q3

REPORT INFORMATION
  Report Type: Spontaneous
  Country: US (occurrence: None)
  Receive Date: 20240730
  Receipt Date: 20240730
  Transmission Date: 20241017
  Serious: Yes (Disabling)
  Sender: Public
  Company Number: None

PATIENT
  Age: 83 Year
  Sex: Female
  Weight: 48.6 kg

DRUGS (22)
  1. SERTRALINE [Suspect]
     Active Substance: SERTRALINE HYDROCHLORIDE
     Indication: Anxiety
     Dosage: 45 TABLETS DAILY ORAL
     Route: 048
     Dates: start: 20240723, end: 20240726
  2. SERTRALINE [Suspect]
     Active Substance: SERTRALINE HYDROCHLORIDE
     Indication: Depression
  3. PRAVASTATIN [Concomitant]
     Active Substance: PRAVASTATIN
  4. BUSPIRONE [Concomitant]
     Active Substance: BUSPIRONE HYDROCHLORIDE
  5. POTASSIUM [Concomitant]
     Active Substance: POTASSIUM
  6. THYROID [Concomitant]
     Active Substance: LEVOTHYROXINE\LIOTHYRONINE
  7. THYROID [Concomitant]
     Active Substance: LEVOTHYROXINE\LIOTHYRONINE
  8. PANTOPRAZOLE [Concomitant]
     Active Substance: PANTOPRAZOLE
  9. DOXEPIN [Concomitant]
     Active Substance: DOXEPIN
  10. ASPIRIN [Concomitant]
     Active Substance: ASPIRIN
  11. ZETIA [Concomitant]
     Active Substance: EZETIMIBE
  12. CALM AID [Concomitant]
  13. MATURE MULTI VITAMIN [Concomitant]
  14. EQUATE DAIRY RELIEF [Concomitant]
  15. BEANO [Concomitant]
     Active Substance: ASPERGILLUS NIGER .ALPHA.-GALACTOSIDASE
  16. ULTIMATE FISH OIL [Concomitant]
  17. VITAMIN C (BUFFERED) [Concomitant]
  18. ALINE PROBIOTIC [Concomitant]
  19. .ALPHA.-LIPOIC ACID [Concomitant]
     Active Substance: .ALPHA.-LIPOIC ACID
  20. VITAMIN B COMPLEX [Concomitant]
     Active Substance: CYANOCOBALAMIN\DEXPANTHENOL\NIACINAMIDE\PYRIDOXINE HYDROCHLORIDE\RIBOFLAVIN 5^-PHOSPHATE SODIUM\THIA
  21. TALM-PRO (GREEN TEA DERIVATIVE) [Concomitant]
  22. HYDROXYZINE [Concomitant]
     Active Substance: HYDROXYZINE HYDROCHLORIDE

REACTIONS (2)
  - Fatigue [None]
  - Drug interaction [None]

NARRATIVE: CASE EVENT DATE: 20240727
